FAERS Safety Report 12971329 (Version 1)
Quarter: 2016Q4

REPORT INFORMATION
  Report Type: Spontaneous
  Country: US (occurrence: US)
  Receive Date: 20161123
  Receipt Date: 20161123
  Transmission Date: 20170207
  Serious: No
  Sender: FDA-Public Use
  Company Number: US-JAZZ-2016-US-019793

PATIENT
  Sex: Female

DRUGS (13)
  1. ACCOLATE [Concomitant]
     Active Substance: ZAFIRLUKAST
  2. TRICOR                             /00090101/ [Concomitant]
     Active Substance: ADENOSINE
  3. NASACORT [Concomitant]
     Active Substance: TRIAMCINOLONE ACETONIDE
  4. TOPAMAX [Concomitant]
     Active Substance: TOPIRAMATE
  5. XYREM [Suspect]
     Active Substance: SODIUM OXYBATE
     Indication: FIBROMYALGIA
     Dosage: 4.5 G, BID
     Route: 048
     Dates: start: 200808
  6. IMITREX [Concomitant]
     Active Substance: SUMATRIPTAN SUCCINATE
  7. LYRICA [Concomitant]
     Active Substance: PREGABALIN
  8. FENTORA [Concomitant]
     Active Substance: FENTANYL CITRATE
  9. LUNESTA [Concomitant]
     Active Substance: ESZOPICLONE
  10. MAXALT [Concomitant]
     Active Substance: RIZATRIPTAN BENZOATE
  11. ADVAIR HFA [Concomitant]
     Active Substance: FLUTICASONE PROPIONATE\SALMETEROL XINAFOATE
  12. DEPAKOTE [Concomitant]
     Active Substance: DIVALPROEX SODIUM
  13. PROVENTIL [Concomitant]
     Active Substance: ALBUTEROL

REACTIONS (2)
  - Sinus headache [Unknown]
  - Influenza [Unknown]
